FAERS Safety Report 18259407 (Version 1)
Quarter: 2020Q3

REPORT INFORMATION
  Report Type: Report from Study
  Country: US (occurrence: US)
  Receive Date: 20200911
  Receipt Date: 20200911
  Transmission Date: 20201103
  Serious: Yes (Hospitalization, Other)
  Sender: FDA-Public Use
  Company Number: US-JNJFOC-A-NJ2020-204548

PATIENT
  Age: 41 Year
  Sex: Male
  Weight: 79.82 kg

DRUGS (5)
  1. VELETRI [Suspect]
     Active Substance: EPOPROSTENOL
     Route: 042
  2. VELETRI [Suspect]
     Active Substance: EPOPROSTENOL
     Indication: PULMONARY ARTERIAL HYPERTENSION
     Dosage: 25 NG/KG, PER MIN
     Route: 042
  3. VELETRI [Suspect]
     Active Substance: EPOPROSTENOL
     Dosage: 19 NG/KG, PER MIN
     Route: 042
  4. OPSUMIT [Concomitant]
     Active Substance: MACITENTAN
     Route: 048
  5. VELETRI [Suspect]
     Active Substance: EPOPROSTENOL
     Dosage: 18 NG/KG, PER MIN
     Route: 042

REACTIONS (17)
  - Catheter site erythema [Not Recovered/Not Resolved]
  - Arthralgia [Unknown]
  - Catheter site discharge [Unknown]
  - Pain [Unknown]
  - Myalgia [Unknown]
  - Dermatitis acneiform [Unknown]
  - Medical device site irritation [Unknown]
  - Hypoxia [Unknown]
  - Pain in extremity [Unknown]
  - Dyspnoea [Unknown]
  - Hospitalisation [Recovered/Resolved]
  - Flushing [Not Recovered/Not Resolved]
  - Syncope [Unknown]
  - Catheter site pruritus [Not Recovered/Not Resolved]
  - Device related infection [Unknown]
  - Memory impairment [Unknown]
  - Catheter site haemorrhage [Unknown]

NARRATIVE: CASE EVENT DATE: 202005
